FAERS Safety Report 4717047-8 (Version None)
Quarter: 2005Q3

REPORT INFORMATION
  Report Type: 
  Country: None (occurrence: None)
  Receive Date: 20050719
  Receipt Date: 20050708
  Transmission Date: 20060218
  Serious: Yes (Other)
  Sender: FDA-Public Use
  Company Number: AU-JNJFOC-20050701379

PATIENT
  Age: 12 Month
  Weight: 9.8 kg

DRUGS (1)
  1. IBUPROFEN [Suspect]
     Indication: VARICELLA
     Dosage: Q6-8H, PRN

REACTIONS (1)
  - STREPTOCOCCAL INFECTION [None]
